APPROVED DRUG PRODUCT: LOPERAMIDE HYDROCHLORIDE
Active Ingredient: LOPERAMIDE HYDROCHLORIDE
Strength: 2MG
Dosage Form/Route: TABLET;ORAL
Application: A074091 | Product #001
Applicant: OHM LABORATORIES INC
Approved: Dec 10, 1992 | RLD: No | RS: No | Type: OTC